FAERS Safety Report 5636341-X (Version None)
Quarter: 2008Q1

REPORT INFORMATION
  Report Type: 
  Country: None (occurrence: None)
  Receive Date: 20080225
  Receipt Date: 20080211
  Transmission Date: 20080703
  Serious: Yes (Hospitalization)
  Sender: FDA-Public Use
  Company Number: FR-AMGEN-US263744

PATIENT
  Sex: Female

DRUGS (2)
  1. ENBREL [Suspect]
     Indication: PSORIATIC ARTHROPATHY
     Route: 058
     Dates: start: 20071213, end: 20080131
  2. ENBREL [Suspect]
     Indication: PSORIASIS

REACTIONS (5)
  - ASTHMA [None]
  - CONDITION AGGRAVATED [None]
  - EOSINOPHILIA [None]
  - ERYSIPELAS [None]
  - PYREXIA [None]
